FAERS Safety Report 9825631 (Version 3)
Quarter: 2015Q2

REPORT INFORMATION
  Report Type: Spontaneous
  Country: US (occurrence: US)
  Receive Date: 20140117
  Receipt Date: 20150602
  Transmission Date: 20150821
  Serious: Yes (Hospitalization, Other)
  Sender: FDA-Public Use
  Company Number: US-BAYER-2014-007943

PATIENT
  Age: 27 Year
  Sex: Female
  Weight: 113.38 kg

DRUGS (1)
  1. MIRENA [Suspect]
     Active Substance: LEVONORGESTREL
     Indication: MENORRHAGIA
     Dosage: 20 MCG/24HR, CONT
     Route: 015
     Dates: start: 20070322, end: 20090126

REACTIONS (9)
  - Insomnia [Not Recovered/Not Resolved]
  - Pain [None]
  - Genital haemorrhage [None]
  - Cervix carcinoma [None]
  - Infertility female [None]
  - Blood count abnormal [None]
  - Device dislocation [None]
  - Depression [None]
  - Hot flush [Not Recovered/Not Resolved]

NARRATIVE: CASE EVENT DATE: 200703
